FAERS Safety Report 21122736 (Version 1)
Quarter: 2022Q3

REPORT INFORMATION
  Report Type: Spontaneous
  Country: DE (occurrence: DE)
  Receive Date: 20220723
  Receipt Date: 20220723
  Transmission Date: 20221027
  Serious: Yes (Hospitalization, Other)
  Sender: FDA-Public Use
  Company Number: DE-NOVARTISPH-NVSC2022DE162601

PATIENT
  Age: 1 Day
  Sex: Female
  Weight: 3.36 kg

DRUGS (6)
  1. MIRTAZAPINE [Suspect]
     Active Substance: MIRTAZAPINE
     Indication: Foetal exposure during pregnancy
     Dosage: MATERNAL DOSE- UNK
     Route: 064
  2. ZOPICLONE [Suspect]
     Active Substance: ZOPICLONE
     Indication: Foetal exposure during pregnancy
     Dosage: UNK
     Route: 064
  3. LORAZEPAM [Suspect]
     Active Substance: LORAZEPAM
     Indication: Foetal exposure during pregnancy
     Dosage: UNK
     Route: 064
  4. VENLAFAXINE [Suspect]
     Active Substance: VENLAFAXINE HYDROCHLORIDE
     Indication: Foetal exposure during pregnancy
     Dosage: UNK (MATERNAL DOSE: 300 MG QD)
     Route: 064
  5. METOPROLOL [Concomitant]
     Active Substance: METOPROLOL
     Indication: Foetal exposure during pregnancy
     Dosage: UNK
     Route: 064
  6. METHYLDOPA [Concomitant]
     Active Substance: METHYLDOPA
     Indication: Foetal exposure during pregnancy
     Dosage: UNKV (MATERNAL DOSE: 1500 MG QD)
     Route: 064

REACTIONS (8)
  - Hypotonia neonatal [Recovered/Resolved]
  - Neonatal asphyxia [Recovered/Resolved]
  - Subdural haemorrhage [Recovered/Resolved]
  - Patent ductus arteriosus [Recovered/Resolved]
  - Neonatal seizure [Recovered/Resolved]
  - Neonatal respiratory failure [Recovered/Resolved]
  - Newborn persistent pulmonary hypertension [Recovered/Resolved]
  - Foetal exposure during pregnancy [Unknown]

NARRATIVE: CASE EVENT DATE: 20211101
